FAERS Safety Report 16339312 (Version 1)
Quarter: 2019Q2

REPORT INFORMATION
  Report Type: Spontaneous
  Country: DE (occurrence: DE)
  Receive Date: 20190521
  Receipt Date: 20190521
  Transmission Date: 20190711
  Serious: Yes (Life-Threatening, Other)
  Sender: FDA-Public Use
  Company Number: DE-PFIZER INC-2019215376

PATIENT
  Age: 57 Year
  Sex: Male
  Weight: 108 kg

DRUGS (4)
  1. REPATHA [Suspect]
     Active Substance: EVOLOCUMAB
     Indication: HYPERCHOLESTEROLAEMIA
     Dosage: 140 MG, EVERY 2 WEEKS
     Route: 058
     Dates: start: 2016
  2. METEX (METHOTREXATE SODIUM) [Suspect]
     Active Substance: METHOTREXATE SODIUM
     Indication: PSORIATIC ARTHROPATHY
     Dosage: 15 MG, UNK (PEN)
     Route: 058
     Dates: start: 20190415
  3. REPATHA [Suspect]
     Active Substance: EVOLOCUMAB
     Indication: DRUG INTOLERANCE
  4. METHOTREXATE SODIUM. [Suspect]
     Active Substance: METHOTREXATE SODIUM
     Indication: PSORIATIC ARTHROPATHY
     Dosage: 10 MG, WEEKLY
     Route: 048

REACTIONS (4)
  - Troponin I increased [Not Recovered/Not Resolved]
  - Sepsis [Unknown]
  - Renal failure [Not Recovered/Not Resolved]
  - Vascular stent thrombosis [Not Recovered/Not Resolved]

NARRATIVE: CASE EVENT DATE: 2019
